FAERS Safety Report 8048578-3 (Version None)
Quarter: 2012Q1

REPORT INFORMATION
  Report Type: 
  Country: None (occurrence: None)
  Receive Date: 20120117
  Receipt Date: 20120106
  Transmission Date: 20120608
  Serious: Yes (Hospitalization)
  Sender: FDA-Public Use
  Company Number: JP-EISAI INC-E7389-01924-CLI-JP

PATIENT
  Sex: Female
  Weight: 50 kg

DRUGS (10)
  1. EMEND [Concomitant]
     Indication: PROPHYLAXIS
     Route: 048
  2. OXYCONTIN [Concomitant]
     Route: 048
  3. PURSENNID [Concomitant]
     Route: 048
  4. HALAVEN [Suspect]
     Indication: METASTASES TO LUNG
  5. SOLU-MEDROL [Concomitant]
  6. PREDNISOLONE [Concomitant]
  7. HALAVEN [Suspect]
     Indication: BREAST CANCER RECURRENT
     Route: 041
     Dates: start: 20111017, end: 20111219
  8. FAMOTIDINE [Concomitant]
     Indication: PROPHYLAXIS
     Route: 048
  9. MUCOSTA [Concomitant]
     Indication: PROPHYLAXIS
     Route: 048
  10. HALAVEN [Suspect]
     Indication: METASTASES TO LIVER

REACTIONS (1)
  - INTERSTITIAL LUNG DISEASE [None]
